FAERS Safety Report 5615560-2 (Version None)
Quarter: 2008Q1

REPORT INFORMATION
  Report Type: 
  Country: None (occurrence: None)
  Receive Date: 20080204
  Receipt Date: 20080204
  Transmission Date: 20080703
  Serious: Yes (Hospitalization)
  Sender: FDA-Public Use
  Company Number: None

PATIENT
  Sex: Male

DRUGS (1)
  1. VIVACTIL [Suspect]
     Indication: MIGRAINE PROPHYLAXIS
     Dosage: TAPER UP TO 2 TABS DAILY (PT ONLY TOOK 1 TAB DAILY FOR 3 DAYS
     Dates: start: 20071201, end: 20071203

REACTIONS (1)
  - LOSS OF CONSCIOUSNESS [None]
